FAERS Safety Report 24060927 (Version 1)
Quarter: 2024Q3

REPORT INFORMATION
  Report Type: Spontaneous
  Country: JP (occurrence: JP)
  Receive Date: 20240708
  Receipt Date: 20240708
  Transmission Date: 20241017
  Serious: Yes (Death, Other)
  Sender: GENMAB
  Company Number: JP-GENMAB-2024-02316

PATIENT
  Age: 8 Decade
  Sex: Female

DRUGS (3)
  1. EPKINLY [Suspect]
     Active Substance: EPCORITAMAB-BYSP
     Indication: Product used for unknown indication
     Dosage: 0.16 MILLIGRAM, SINGLE
     Route: 058
     Dates: start: 20240523, end: 20240523
  2. EPKINLY [Suspect]
     Active Substance: EPCORITAMAB-BYSP
     Dosage: 0.8 MILLIGRAM
     Route: 058
     Dates: start: 20240530, end: 20240530
  3. EPKINLY [Suspect]
     Active Substance: EPCORITAMAB-BYSP
     Dosage: 16 MILLIGRAM
     Route: 058
     Dates: start: 20240606, end: 20240606

REACTIONS (2)
  - Malignant neoplasm progression [Fatal]
  - Intentional underdose [Unknown]

NARRATIVE: CASE EVENT DATE: 20240606
